FAERS Safety Report 15923989 (Version 2)
Quarter: 2019Q1

REPORT INFORMATION
  Report Type: Spontaneous
  Country: US (occurrence: US)
  Receive Date: 20190205
  Receipt Date: 20190219
  Transmission Date: 20190417
  Serious: No
  Sender: FDA-Public Use
  Company Number: US-ALLERGAN-1819607US

PATIENT
  Sex: Female

DRUGS (1)
  1. BOTOX [Suspect]
     Active Substance: ONABOTULINUMTOXINA
     Indication: SYNKINESIS
     Dosage: UNK, SINGLE
     Route: 030

REACTIONS (8)
  - General physical condition abnormal [Not Recovered/Not Resolved]
  - Facial paresis [Unknown]
  - Erythema [Unknown]
  - Lagophthalmos [Not Recovered/Not Resolved]
  - Therapeutic response increased [Not Recovered/Not Resolved]
  - Off label use [Unknown]
  - Swelling face [Unknown]
  - Rash [Not Recovered/Not Resolved]
